FAERS Safety Report 4441770-6 (Version None)
Quarter: 2004Q3

REPORT INFORMATION
  Report Type: 
  Country: None (occurrence: None)
  Receive Date: 20040907
  Receipt Date: 20040810
  Transmission Date: 20050211
  Serious: Yes (Other)
  Sender: FDA-Public Use
  Company Number: PHBS2004ES10704

PATIENT
  Age: 33 Year
  Sex: Male

DRUGS (8)
  1. CYCLOSPORINE [Suspect]
     Indication: RENAL TRANSPLANT
  2. BASILIXIMAB [Suspect]
     Indication: RENAL TRANSPLANT
  3. STEROIDS NOS [Suspect]
     Indication: RENAL TRANSPLANT
  4. SIROLIMUS [Suspect]
     Indication: RENAL TRANSPLANT
  5. ENALAPRIL [Concomitant]
     Dosage: 10 MG/D
  6. CO-TRIMOXAZOLE [Concomitant]
  7. GANCICLOVIR [Concomitant]
  8. MYCOPHENOLATE MOFETIL [Suspect]

REACTIONS (9)
  - BLOOD CREATININE INCREASED [None]
  - FISTULA [None]
  - LYMPHOCELE [None]
  - NEPHRITIS INTERSTITIAL [None]
  - NEPHROPATHY TOXIC [None]
  - PROTEINURIA [None]
  - PYELONEPHRITIS ACUTE [None]
  - PYREXIA [None]
  - RENAL INFARCT [None]
